FAERS Safety Report 7999913-3 (Version None)
Quarter: 2011Q4

REPORT INFORMATION
  Report Type: 
  Country: None (occurrence: None)
  Receive Date: 20111222
  Receipt Date: 20111213
  Transmission Date: 20120403
  Serious: No
  Sender: FDA-Public Use
  Company Number: US-BIOGENIDEC-2011BI047304

PATIENT
  Age: 30 Year
  Sex: Female

DRUGS (3)
  1. TYSABRI [Suspect]
     Indication: MULTIPLE SCLEROSIS
     Route: 042
     Dates: start: 20110722, end: 20111014
  2. TYSABRI [Suspect]
     Route: 042
     Dates: start: 20080509, end: 20100805
  3. TYSABRI [Suspect]
     Route: 042
     Dates: start: 20061229, end: 20070730

REACTIONS (2)
  - PNEUMONIA [None]
  - MULTIPLE SCLEROSIS [None]
